FAERS Safety Report 4301445-0 (Version None)
Quarter: 2004Q1

REPORT INFORMATION
  Report Type: 
  Country: None (occurrence: None)
  Receive Date: 20040220
  Receipt Date: 20040220
  Transmission Date: 20041129
  Serious: Yes (Life-Threatening)
  Sender: FDA-Public Use
  Company Number: None

PATIENT
  Age: 43 Year
  Sex: Female
  Weight: 132 kg

DRUGS (1)
  1. DEXFERRUM [Suspect]

REACTIONS (1)
  - DYSPNOEA [None]
